FAERS Safety Report 4715736-2 (Version None)
Quarter: 2005Q2

REPORT INFORMATION
  Report Type: 
  Country: None (occurrence: None)
  Receive Date: 20050629
  Receipt Date: 20050504
  Transmission Date: 20051028
  Serious: No
  Sender: FDA-Public Use
  Company Number: SP00432

PATIENT
  Age: 56 Year
  Sex: Female

DRUGS (1)
  1. XIFAXAN [Suspect]
     Indication: CROHN'S DISEASE
     Dosage: 200MG/BID, ORAL
     Route: 048
     Dates: start: 20050301, end: 20050418

REACTIONS (2)
  - BLISTER [None]
  - RASH PRURITIC [None]
